FAERS Safety Report 11758498 (Version 2)
Quarter: 2019Q2

REPORT INFORMATION
  Report Type: Spontaneous
  Country: US (occurrence: US)
  Receive Date: 20151120
  Receipt Date: 20190423
  Transmission Date: 20190711
  Serious: Yes (Death, Hospitalization, Other)
  Sender: FDA-Public Use
  Company Number: US-009507513-1511USA010973

PATIENT
  Sex: Male
  Weight: 96.15 kg

DRUGS (1)
  1. JANUVIA [Suspect]
     Active Substance: SITAGLIPTIN PHOSPHATE
     Indication: TYPE 2 DIABETES MELLITUS
     Dosage: 100 MILLIGRAM, QD
     Route: 048
     Dates: start: 20090722, end: 201309

REACTIONS (15)
  - Coagulation test abnormal [Unknown]
  - Hepatic enzyme abnormal [Unknown]
  - Renal failure [Unknown]
  - Hepatic cirrhosis [Unknown]
  - Hyperglycaemia [Unknown]
  - Pancreatic carcinoma [Fatal]
  - QRS axis abnormal [Unknown]
  - Electrocardiogram ST segment depression [Unknown]
  - Electrocardiogram T wave inversion [Unknown]
  - Obesity [Unknown]
  - Coronary artery disease [Unknown]
  - Dysuria [Unknown]
  - Thrombosis [Unknown]
  - Bile duct obstruction [Unknown]
  - Dyspnoea [Unknown]

NARRATIVE: CASE EVENT DATE: 20091030
